FAERS Safety Report 14353592 (Version 6)
Quarter: 2022Q2

REPORT INFORMATION
  Report Type: Spontaneous
  Country: US (occurrence: US)
  Receive Date: 20180105
  Receipt Date: 20220606
  Transmission Date: 20220721
  Serious: No
  Sender: FDA-Public Use
  Company Number: US-BIOGEN-2018BI00505226

PATIENT
  Sex: Female

DRUGS (1)
  1. PLEGRIDY [Suspect]
     Active Substance: PEGINTERFERON BETA-1A
     Indication: Multiple sclerosis
     Route: 050
     Dates: start: 20170328

REACTIONS (13)
  - Drug ineffective [Unknown]
  - Alopecia [Not Recovered/Not Resolved]
  - Stress [Not Recovered/Not Resolved]
  - Decreased immune responsiveness [Not Recovered/Not Resolved]
  - Magnetic resonance imaging head abnormal [Not Recovered/Not Resolved]
  - Weight decreased [Unknown]
  - Cognitive disorder [Unknown]
  - Visual impairment [Unknown]
  - Ear infection [Unknown]
  - COVID-19 [Unknown]
  - Hypertension [Recovered/Resolved]
  - Illness [Unknown]
  - Headache [Recovered/Resolved]
